FAERS Safety Report 6780791-5 (Version None)
Quarter: 2010Q2

REPORT INFORMATION
  Report Type: 
  Country: None (occurrence: None)
  Receive Date: 20100621
  Receipt Date: 20100611
  Transmission Date: 20101027
  Serious: Yes (Other)
  Sender: FDA-Public Use
  Company Number: HQWYE024216JUL03

PATIENT
  Sex: Female

DRUGS (5)
  1. PREMPRO [Suspect]
     Indication: HORMONE REPLACEMENT THERAPY
     Dosage: 0.625MG/UNSPECIFIED
     Route: 048
  2. PREMARIN [Suspect]
  3. FEMHRT [Suspect]
  4. CENESTIN [Suspect]
  5. PROMETRIUM [Suspect]

REACTIONS (1)
  - CONTRALATERAL BREAST CANCER [None]
